FAERS Safety Report 18203763 (Version 1)
Quarter: 2020Q3

REPORT INFORMATION
  Report Type: Spontaneous
  Country: US (occurrence: US)
  Receive Date: 20200827
  Receipt Date: 20200827
  Transmission Date: 20201103
  Serious: No
  Sender: FDA-Public Use
  Company Number: US-INDIVIOR LIMITED-INDV-125850-2020

PATIENT
  Sex: Male
  Weight: 62 kg

DRUGS (3)
  1. XYLOCAINE [Concomitant]
     Active Substance: LIDOCAINE HYDROCHLORIDE
     Indication: INJECTION SITE REACTION
     Dosage: UNK
     Route: 061
     Dates: start: 202001
  2. SUBLOCADE [Suspect]
     Active Substance: BUPRENORPHINE
     Indication: DRUG USE DISORDER
     Dosage: 300 MILLIGRAM, QMO(PATIENT RECEIVED SEVENTH INJECTION)
     Route: 058
     Dates: start: 20200109
  3. FENTANYL. [Suspect]
     Active Substance: FENTANYL
     Indication: PRODUCT USED FOR UNKNOWN INDICATION
     Dosage: UNK
     Route: 065
     Dates: start: 202001

REACTIONS (6)
  - Injection site pain [Recovered/Resolved]
  - Injection site ulcer [Recovering/Resolving]
  - Drug delivery system removal [Recovered/Resolved]
  - Drug dependence [Recovered/Resolved]
  - Injection site discharge [Recovered/Resolved]
  - Fatigue [Not Recovered/Not Resolved]

NARRATIVE: CASE EVENT DATE: 2020
